FAERS Safety Report 18507511 (Version 1)
Quarter: 2020Q4

REPORT INFORMATION
  Report Type: Spontaneous
  Country: US (occurrence: US)
  Receive Date: 20201116
  Receipt Date: 20201116
  Transmission Date: 20210114
  Serious: Yes (Other)
  Sender: FDA-Public Use
  Company Number: US-PFIZER INC-2020444941

PATIENT

DRUGS (2)
  1. SUFENTANIL CITRATE. [Suspect]
     Active Substance: SUFENTANIL CITRATE
     Indication: SPINAL ANAESTHESIA
     Dosage: 50 UG
  2. BUPIVACAINE HCL [Suspect]
     Active Substance: BUPIVACAINE HYDROCHLORIDE
     Indication: SPINAL ANAESTHESIA
     Dosage: UNK (0.75% BUPIVACAINE IN 8.25% DEXTROSE AMPULES)

REACTIONS (2)
  - Drug ineffective [Unknown]
  - Pain [Unknown]
